FAERS Safety Report 15607758 (Version 1)
Quarter: 2018Q4

REPORT INFORMATION
  Report Type: Spontaneous
  Country: US (occurrence: US)
  Receive Date: 20181112
  Receipt Date: 20181112
  Transmission Date: 20190205
  Serious: Yes (Other)
  Sender: FDA-Public Use
  Company Number: US-PFIZER INC-2018451992

PATIENT
  Sex: Female

DRUGS (1)
  1. COLESTIPOL HCL [Suspect]
     Active Substance: COLESTIPOL HYDROCHLORIDE
     Indication: BILE ACID MALABSORPTION
     Dosage: UNK

REACTIONS (3)
  - Flatulence [Unknown]
  - Clostridium difficile infection [Recovered/Resolved]
  - Product use in unapproved indication [Unknown]
